FAERS Safety Report 9191204 (Version 1)
Quarter: 2013Q1

REPORT INFORMATION
  Report Type: Spontaneous
  Country: US (occurrence: None)
  Receive Date: 20120703
  Receipt Date: 20120703
  Transmission Date: 20140127
  Serious: No
  Sender: FDA-Public Use
  Company Number: PHEH2012US010548

PATIENT
  Age: 37 Year
  Sex: 0

DRUGS (1)
  1. GILENYA [Suspect]
     Route: 048
     Dates: start: 20120517

REACTIONS (4)
  - Arthralgia [None]
  - Abdominal discomfort [None]
  - Bradycardia [None]
  - Paraesthesia [None]
